FAERS Safety Report 4635426-4 (Version None)
Quarter: 2005Q2

REPORT INFORMATION
  Report Type: 
  Country: None (occurrence: None)
  Receive Date: 20050413
  Receipt Date: 20050411
  Transmission Date: 20051028
  Serious: Yes (Death)
  Sender: FDA-Public Use
  Company Number: 04-11-1631

PATIENT
  Age: 61 Year
  Sex: Female

DRUGS (4)
  1. CLOZAPINE [Suspect]
     Indication: SCHIZOPHRENIA, PARANOID TYPE
     Dosage: 500MG QD ORAL
     Route: 048
     Dates: start: 19991101, end: 20041101
  2. ZYPREXA [Suspect]
     Indication: SCHIZOPHRENIA
     Dosage: 7.5MG BID ORAL/MONTHS
     Route: 048
  3. LEVOTHYROXINE SODIUM [Concomitant]
  4. DIAZEPAM [Concomitant]

REACTIONS (3)
  - ARRHYTHMIA [None]
  - CARDIOMEGALY [None]
  - HYPOTHYROIDISM [None]
